FAERS Safety Report 4635202-2 (Version None)
Quarter: 2005Q2

REPORT INFORMATION
  Report Type: 
  Country: None (occurrence: None)
  Receive Date: 20050414
  Receipt Date: 20041013
  Transmission Date: 20051028
  Serious: Yes (Hospitalization)
  Sender: FDA-Public Use
  Company Number: US-BRISTOL-MYERS SQUIBB COMPANY-12731204

PATIENT
  Age: 78 Year
  Sex: Male
  Weight: 79 kg

DRUGS (18)
  1. CETUXIMAB [Suspect]
     Indication: COLORECTAL CANCER METASTATIC
     Dosage: TREATMENT DELAYED. INITIATED ON 15-SEP-04 (1 COURSE)
     Route: 042
     Dates: start: 20040922, end: 20040922
  2. FLUOROURACIL [Suspect]
     Indication: COLORECTAL CANCER METASTATIC
     Dosage: THERAPY DELAYED. BOLUS (589) 15-SEP-04 TO 30-SEP-04, 24HR (1176) 15-SEP-04 TO 01-OCT-04. 2 COURSES
     Route: 042
     Dates: start: 20041001, end: 20041001
  3. OXALIPLATIN [Suspect]
     Indication: COLORECTAL CANCER METASTATIC
     Dosage: THERAPY DELAYED.
     Route: 042
  4. LEUCOVORIN CALCIUM [Suspect]
     Indication: COLORECTAL CANCER METASTATIC
     Dosage: TREATMENT DELAYED.
     Route: 042
  5. ALTACE [Concomitant]
  6. BENICAR [Concomitant]
  7. CRESTOR [Concomitant]
  8. CLARITIN [Concomitant]
  9. NEURONTIN [Concomitant]
  10. EYE DROPS [Concomitant]
     Indication: GLAUCOMA
  11. FLOMAX [Concomitant]
  12. DILANTIN [Concomitant]
  13. ASPIRIN [Concomitant]
  14. LEXAPRO [Concomitant]
  15. TRAZODONE HCL [Concomitant]
  16. TAGAMET [Concomitant]
  17. PERCOCET [Concomitant]
  18. TYLENOL W/ CODEINE NO. 3 [Concomitant]

REACTIONS (7)
  - ANAEMIA [None]
  - COUGH [None]
  - DERMATITIS ACNEIFORM [None]
  - DIARRHOEA [None]
  - RENAL FAILURE ACUTE [None]
  - STAPHYLOCOCCAL SEPSIS [None]
  - VOMITING [None]
